FAERS Safety Report 10563825 (Version 2)
Quarter: 2014Q4

REPORT INFORMATION
  Report Type: Report from Study
  Country: AU (occurrence: AU)
  Receive Date: 20141104
  Receipt Date: 20141104
  Transmission Date: 20150529
  Serious: Yes (Death, Other)
  Sender: FDA-Public Use
  Company Number: PHHY2014AU140317

PATIENT
  Age: 84 Year
  Sex: Male

DRUGS (1)
  1. CLOZARIL [Suspect]
     Active Substance: CLOZAPINE
     Indication: SCHIZOPHRENIA
     Dosage: 25 MG, DAILY
     Route: 048
     Dates: start: 20120221, end: 20140923

REACTIONS (11)
  - Wrist fracture [Unknown]
  - Viral infection [Unknown]
  - Decubitus ulcer [Unknown]
  - Constipation [Unknown]
  - Cellulitis [Unknown]
  - Hypernatraemia [Unknown]
  - Pneumonia aspiration [Fatal]
  - Infrequent bowel movements [Unknown]
  - General physical health deterioration [Unknown]
  - Fall [Unknown]
  - Cough [Not Recovered/Not Resolved]

NARRATIVE: CASE EVENT DATE: 2014
